FAERS Safety Report 25890440 (Version 1)
Quarter: 2025Q4

REPORT INFORMATION
  Report Type: Spontaneous
  Country: EU (occurrence: EU)
  Receive Date: 20251007
  Receipt Date: 20251007
  Transmission Date: 20260117
  Serious: Yes (Hospitalization, Other)
  Sender: PFIZER
  Company Number: None

PATIENT
  Age: 42 Year
  Sex: Female

DRUGS (4)
  1. RITUXIMAB [Suspect]
     Active Substance: RITUXIMAB
     Indication: Follicular lymphoma
     Dosage: 1400 MG EVERY 2 MONTHS
     Route: 058
     Dates: start: 20241108
  2. BACTRIM [Suspect]
     Active Substance: SULFAMETHOXAZOLE\TRIMETHOPRIM
     Indication: Antibiotic prophylaxis
     Dosage: 3 DF, WEEKLY
     Route: 048
     Dates: start: 20241017
  3. DESOGESTREL [Suspect]
     Active Substance: DESOGESTREL
     Indication: Oral contraception
     Dosage: 1 DF, 1X/DAY
     Route: 048
     Dates: start: 20241017
  4. VALACYCLOVIR HYDROCHLORIDE [Suspect]
     Active Substance: VALACYCLOVIR HYDROCHLORIDE
     Indication: Antiviral prophylaxis
     Dosage: 1000 MG, 1X/DAY
     Route: 048
     Dates: start: 20241017

REACTIONS (3)
  - Arterial intramural haematoma [Recovering/Resolving]
  - Acute coronary syndrome [Recovering/Resolving]
  - Off label use [Unknown]

NARRATIVE: CASE EVENT DATE: 20241108
